FAERS Safety Report 20707507 (Version 1)
Quarter: 2022Q2

REPORT INFORMATION
  Report Type: Spontaneous
  Country: JP (occurrence: JP)
  Receive Date: 20220413
  Receipt Date: 20220413
  Transmission Date: 20220721
  Serious: Yes (Hospitalization, Other)
  Sender: FDA-Public Use
  Company Number: JP-ANIPHARMA-2022-JP-000114

PATIENT
  Age: 70 Year
  Sex: Male

DRUGS (9)
  1. CASODEX [Suspect]
     Active Substance: BICALUTAMIDE
     Indication: Prostate cancer
     Dosage: 80 MG QD
     Route: 048
     Dates: end: 2020
  2. LYNPARZA [Suspect]
     Active Substance: OLAPARIB
     Dosage: 300 MG BID / 300 MG BID
     Route: 048
     Dates: start: 20211209
  3. UNSPECIFIED INGREDIENT [Suspect]
     Active Substance: UNSPECIFIED INGREDIENT
     Route: 065
  4. DECADRON [Concomitant]
     Active Substance: DEXAMETHASONE
     Route: 048
     Dates: end: 20220106
  5. DEGARELIX ACETATE [Concomitant]
     Active Substance: DEGARELIX ACETATE
     Route: 065
  6. ENZALUTAMIDE [Concomitant]
     Active Substance: ENZALUTAMIDE
     Route: 065
     Dates: start: 2020, end: 2021
  7. DOCETAXEL [Concomitant]
     Active Substance: DOCETAXEL
     Route: 065
     Dates: start: 2021, end: 2021
  8. CABAZITAXEL [Concomitant]
     Active Substance: CABAZITAXEL
     Dosage: 20 MG/M2 Q3WK
     Route: 065
     Dates: start: 2021, end: 2021
  9. ABRAXANE [Concomitant]
     Active Substance: PACLITAXEL
     Route: 065
     Dates: start: 2021, end: 2021

REACTIONS (4)
  - Pruritus [Unknown]
  - Metastases to lung [Unknown]
  - Metastases to lymph nodes [Unknown]
  - Rash [Recovering/Resolving]
